FAERS Safety Report 6118220-7 (Version None)
Quarter: 2009Q1

REPORT INFORMATION
  Report Type: 
  Country: None (occurrence: None)
  Receive Date: 20090314
  Receipt Date: 20090211
  Transmission Date: 20090719
  Serious: Yes (Other)
  Sender: FDA-Public Use
  Company Number: US-ABBOTT-09P-163-0502883-00

PATIENT
  Sex: Female
  Weight: 167.07 kg

DRUGS (3)
  1. HUMIRA [Suspect]
     Indication: RHEUMATOID ARTHRITIS
     Route: 058
     Dates: start: 20030101, end: 20040101
  2. HUMIRA [Suspect]
     Route: 058
     Dates: start: 20040101, end: 20090201
  3. HUMIRA [Suspect]
     Dosage: PEN
     Route: 058
     Dates: start: 20090201

REACTIONS (7)
  - ARTHRALGIA [None]
  - DRUG DELIVERY SYSTEM MALFUNCTION [None]
  - DRUG INEFFECTIVE [None]
  - JOINT SWELLING [None]
  - SQUAMOUS CELL CARCINOMA [None]
  - STAPHYLOCOCCAL INFECTION [None]
  - WEIGHT DECREASED [None]
